FAERS Safety Report 10271445 (Version 1)
Quarter: 2014Q1

REPORT INFORMATION
  Report Type: Spontaneous
  Country: US (occurrence: None)
  Receive Date: 20140306
  Receipt Date: 20140306
  Transmission Date: 20141002
  Serious: Yes (Hospitalization)
  Sender: FDA-Public Use
  Company Number: 163-21880-13081790

PATIENT
  Age: 59 Year
  Sex: Female

DRUGS (18)
  1. REVLIMID [Suspect]
     Indication: MYELODYSPLASTIC SYNDROME
     Route: 048
     Dates: start: 2013
  2. LORTAB  (VICODIN) [Concomitant]
  3. COMBIVENT [Concomitant]
  4. AMLODIPINE [Concomitant]
  5. ASPIRIN (ACETYLSALICYLIC ACID) [Concomitant]
  6. LIPITOR (ATORVASTATIN) [Concomitant]
  7. VITAMIN B 12 [Concomitant]
  8. FLEXERIL (CYCLOBENZAPRINE HYDROCHLORIDE) [Concomitant]
  9. ADVAIR DISKUS [Concomitant]
  10. LASIX (FUROSEMIDE) [Concomitant]
  11. LISINOPRIL [Concomitant]
  12. METOPROLOL [Concomitant]
  13. OMEPRAZOLE [Concomitant]
  14. OXYCODONE [Concomitant]
  15. CALCIUM [Concomitant]
  16. PHENERGAN (PROMETHAZINE) [Concomitant]
  17. COUMADIN (WARFARIN SODIUM) [Concomitant]
  18. TIZANIDINE [Concomitant]

REACTIONS (3)
  - Nausea [None]
  - Vomiting [None]
  - Abdominal pain [None]
